FAERS Safety Report 9211851 (Version 1)
Quarter: 2013Q2

REPORT INFORMATION
  Report Type: Spontaneous
  Country: US (occurrence: US)
  Receive Date: 20130404
  Receipt Date: 20130404
  Transmission Date: 20140414
  Serious: No
  Sender: FDA-Public Use
  Company Number: US-AMGEN-USASP2013022464

PATIENT
  Age: 70 Year
  Sex: Male

DRUGS (2)
  1. ENBREL [Suspect]
     Indication: BACK PAIN
     Dosage: 50 MG, QWK
     Dates: start: 20111101
  2. ENBREL [Suspect]
     Indication: CROHN^S DISEASE

REACTIONS (1)
  - Increased upper airway secretion [Not Recovered/Not Resolved]
